FAERS Safety Report 7900320-X (Version None)
Quarter: 2011Q4

REPORT INFORMATION
  Report Type: 
  Country: None (occurrence: None)
  Receive Date: 20111104
  Receipt Date: 20111024
  Transmission Date: 20120403
  Serious: Yes (Other)
  Sender: FDA-Public Use
  Company Number: 1000024251

PATIENT
  Age: 39 Year
  Sex: Female
  Weight: 78 kg

DRUGS (3)
  1. THALIDOMIDE [Concomitant]
  2. NIVAQUINE (CHLOROQUINE PHOSPHATE) (CHLOROQUINE PHOSPHATE) [Concomitant]
  3. ESCITALOPRAM [Suspect]
     Indication: DEPRESSION
     Dosage: 10 MG (10 MG, 1 IN 1 D), ORAL
     Route: 048
     Dates: start: 20110414

REACTIONS (1)
  - SYSTEMIC LUPUS ERYTHEMATOSUS [None]
